FAERS Safety Report 7440774-9 (Version None)
Quarter: 2011Q2

REPORT INFORMATION
  Report Type: 
  Country: None (occurrence: None)
  Receive Date: 20110427
  Receipt Date: 20110422
  Transmission Date: 20111010
  Serious: Yes (Hospitalization, Other)
  Sender: FDA-Public Use
  Company Number: JP-PFIZER INC-2011087523

PATIENT
  Age: 51 Year
  Sex: Female

DRUGS (3)
  1. PREMARIN [Suspect]
     Indication: VAGINAL HAEMORRHAGE
  2. PREMARIN [Suspect]
     Indication: OFF LABEL USE
     Dosage: 1 TABLET/DAY
  3. PENICILLIN NOS [Concomitant]
     Indication: INFECTION

REACTIONS (4)
  - UTERINE HAEMORRHAGE [None]
  - FRACTURE [None]
  - UREA URINE INCREASED [None]
  - VAGINAL HAEMATOMA [None]
